FAERS Safety Report 9978070 (Version 1)
Quarter: 2014Q1

REPORT INFORMATION
  Report Type: Spontaneous
  Country: US (occurrence: US)
  Receive Date: 20140306
  Receipt Date: 20140306
  Transmission Date: 20141002
  Serious: No
  Sender: FDA-Public Use
  Company Number: US-PFIZER INC-2014062134

PATIENT
  Age: 49 Year
  Sex: Male
  Weight: 111.11 kg

DRUGS (2)
  1. BOSULIF [Suspect]
     Indication: HAEMATOLOGICAL MALIGNANCY
     Dosage: 500 MG, 1X/DAY
     Route: 048
     Dates: start: 20140227
  2. LISINOPRIL [Concomitant]
     Indication: HYPERTENSION
     Dosage: UNK

REACTIONS (1)
  - Diarrhoea [Recovered/Resolved]
